FAERS Safety Report 17433841 (Version 1)
Quarter: 2020Q1

REPORT INFORMATION
  Report Type: Spontaneous
  Country: US (occurrence: US)
  Receive Date: 20200218
  Receipt Date: 20200218
  Transmission Date: 20200409
  Serious: Yes (Disabling)
  Sender: FDA-Public Use
  Company Number: None

PATIENT
  Age: 48 Year
  Weight: 166.5 kg

DRUGS (29)
  1. VITAMIN B12 [Concomitant]
     Active Substance: CYANOCOBALAMIN
  2. DANDELION [Concomitant]
     Active Substance: TARAXACUM OFFICINALE POLLEN
  3. ORENCIA [Concomitant]
     Active Substance: ABATACEPT
  4. MEDROL [Concomitant]
     Active Substance: METHYLPREDNISOLONE
  5. LORATIDINE [Concomitant]
     Active Substance: LORATADINE
  6. ZINC. [Concomitant]
     Active Substance: ZINC
  7. FISH OIL [Concomitant]
     Active Substance: FISH OIL
  8. CPAP [Concomitant]
     Active Substance: DEVICE
  9. LOVENOX [Concomitant]
     Active Substance: ENOXAPARIN SODIUM
  10. CINNAMON. [Concomitant]
     Active Substance: CINNAMON
  11. MAGNESIUM [Concomitant]
     Active Substance: MAGNESIUM
  12. COQ10 [Concomitant]
     Active Substance: UBIDECARENONE
  13. PROBIOTICS [Concomitant]
     Active Substance: PROBIOTICS NOS
  14. XARELTO [Suspect]
     Active Substance: RIVAROXABAN
     Indication: THROMBOSIS
     Dosage: ?          QUANTITY:1 TABLET(S);?
     Route: 048
     Dates: start: 20140601, end: 20200201
  15. METFORMIN [Concomitant]
     Active Substance: METFORMIN HYDROCHLORIDE
  16. SELENIUM [Concomitant]
     Active Substance: SELENIUM
  17. LITHIUM LLOW DOSE OTC [Concomitant]
  18. CHLOROPHYLL [Concomitant]
  19. VVITAMIN C [Concomitant]
  20. TURMERIC [Concomitant]
     Active Substance: HERBALS\TURMERIC
  21. QUERCITIN [Concomitant]
  22. HUMALOG [Concomitant]
     Active Substance: INSULIN LISPRO
  23. NP TJYROID [Concomitant]
  24. MILK THISTLE [Concomitant]
     Active Substance: DIETARY SUPPLEMENT\HERBALS\MILK THISTLE
  25. CHASTE TREE BERRY [Concomitant]
  26. BERBERINE [Concomitant]
     Active Substance: BERBERINE
  27. LANTUS [Concomitant]
     Active Substance: INSULIN GLARGINE
  28. VITAMIN D3 [Concomitant]
     Active Substance: CHOLECALCIFEROL
  29. CETIRIZINE [Concomitant]
     Active Substance: CETIRIZINE HYDROCHLORIDE

REACTIONS (13)
  - Thrombosis [None]
  - Neuropathy peripheral [None]
  - Adverse drug reaction [None]
  - Disability [None]
  - Pain [None]
  - Adnexa uteri pain [None]
  - Rheumatoid arthritis [None]
  - Rash [None]
  - Dizziness postural [None]
  - Sjogren^s syndrome [None]
  - Tendon calcification [None]
  - Subdural haematoma [None]
  - Ovarian cyst ruptured [None]

NARRATIVE: CASE EVENT DATE: 20200115
